FAERS Safety Report 11760081 (Version 1)
Quarter: 2015Q4

REPORT INFORMATION
  Report Type: Spontaneous
  Country: US (occurrence: US)
  Receive Date: 20151120
  Receipt Date: 20151120
  Transmission Date: 20160304
  Serious: Yes (Other)
  Sender: FDA-Public Use
  Company Number: US-ELI_LILLY_AND_COMPANY-US201210009391

PATIENT
  Sex: Female

DRUGS (3)
  1. VITAMIN D [Concomitant]
     Active Substance: CHOLECALCIFEROL
     Dosage: 400 MG, UNK
  2. FORTEO [Suspect]
     Active Substance: TERIPARATIDE
     Indication: OSTEOPOROSIS
     Dosage: 20 UG, UNK
     Dates: start: 201202, end: 201210
  3. CALCIUM [Concomitant]
     Active Substance: CALCIUM
     Dosage: 1200 MG, UNK

REACTIONS (6)
  - Blood parathyroid hormone abnormal [Unknown]
  - Fatigue [Unknown]
  - Constipation [Unknown]
  - Gastrooesophageal reflux disease [Unknown]
  - Hypercalcaemia [Unknown]
  - Nausea [Unknown]
